FAERS Safety Report 8958165 (Version 2)
Quarter: 2013Q1

REPORT INFORMATION
  Report Type: Spontaneous
  Country: US (occurrence: US)
  Receive Date: 20121211
  Receipt Date: 20130129
  Transmission Date: 20140127
  Serious: Yes (Other)
  Sender: FDA-Public Use
  Company Number: US-JNJFOC-20121201924

PATIENT
  Sex: Female
  Weight: 53.52 kg

DRUGS (3)
  1. REMICADE [Suspect]
     Indication: RHEUMATOID ARTHRITIS
     Dosage: APPROXIMATE TOTAL NUMBER OF INFUSIONS RECEIVED- 60
     Route: 042
     Dates: start: 200102, end: 20111011
  2. METHOTREXATE [Suspect]
     Indication: RHEUMATOID ARTHRITIS
     Route: 048
     Dates: start: 2000, end: 2011
  3. NAPROXEN [Concomitant]
     Indication: RHEUMATOID ARTHRITIS
     Dosage: TOTAL DAILY DOSE: 0 TO 500 MG. FREQUENCY 0-2 (UNSPECIFIED)
     Route: 065

REACTIONS (1)
  - Hodgkin^s disease [Recovered/Resolved]
